FAERS Safety Report 20954585 (Version 1)
Quarter: 2022Q2

REPORT INFORMATION
  Report Type: Spontaneous
  Country: JP (occurrence: JP)
  Receive Date: 20220614
  Receipt Date: 20220614
  Transmission Date: 20220721
  Serious: Yes (Other)
  Sender: FDA-Public Use
  Company Number: JP-SUN PHARMACEUTICAL INDUSTRIES LTD-2022RR-340469

PATIENT
  Age: 6 Year
  Sex: Male

DRUGS (6)
  1. IMATINIB [Suspect]
     Active Substance: IMATINIB
     Indication: Acute lymphocytic leukaemia
     Dosage: 270 MILLIGRAM/SQ. METER, DAILY
     Route: 065
  2. IMATINIB [Suspect]
     Active Substance: IMATINIB
     Dosage: 340 MILLIGRAM/SQ. METER, DAILY
     Route: 065
  3. PREDNISOLONE [Concomitant]
     Active Substance: PREDNISOLONE
     Indication: Acute lymphocytic leukaemia
     Dosage: UNK
     Route: 065
  4. VINCRISTINE [Concomitant]
     Active Substance: VINCRISTINE
     Indication: Acute lymphocytic leukaemia
     Dosage: UNK
     Route: 065
  5. ASPARAGINASE [Concomitant]
     Active Substance: ASPARAGINASE
     Indication: Acute lymphocytic leukaemia
     Dosage: UNK
     Route: 065
  6. DAUNORUBICIN [Concomitant]
     Active Substance: DAUNORUBICIN
     Indication: Acute lymphocytic leukaemia
     Dosage: UNK
     Route: 065

REACTIONS (4)
  - Abdominal pain [Unknown]
  - Ileus [Unknown]
  - Bone marrow necrosis [Recovering/Resolving]
  - Pain in extremity [Recovered/Resolved]
